FAERS Safety Report 8092584-X (Version None)
Quarter: 2012Q1

REPORT INFORMATION
  Report Type: 
  Country: None (occurrence: None)
  Receive Date: 20120128
  Receipt Date: 20110725
  Transmission Date: 20120608
  Serious: No
  Sender: FDA-Public Use
  Company Number: US-ABBOTT-11P-163-0841484-00

PATIENT
  Sex: Female
  Weight: 94.432 kg

DRUGS (6)
  1. HUMIRA [Suspect]
     Indication: PSORIATIC ARTHROPATHY
     Route: 058
     Dates: start: 20110707, end: 20110707
  2. VITAMIN D [Concomitant]
     Indication: SUPPLEMENTATION THERAPY
  3. FLUOXETINE [Concomitant]
     Indication: DEPRESSION
  4. COMBIGLYZA [Concomitant]
     Indication: DIABETES MELLITUS
  5. LIVALO [Concomitant]
     Indication: BLOOD CHOLESTEROL INCREASED
  6. ALTACE [Concomitant]
     Indication: DRUG THERAPY

REACTIONS (2)
  - ORAL HERPES [None]
  - SINUSITIS [None]
